FAERS Safety Report 20764250 (Version 1)
Quarter: 2022Q2

REPORT INFORMATION
  Report Type: Spontaneous
  Country: FR (occurrence: FR)
  Receive Date: 20220428
  Receipt Date: 20220428
  Transmission Date: 20220721
  Serious: Yes (Hospitalization)
  Sender: FDA-Public Use
  Company Number: None

PATIENT
  Age: 68 Year
  Sex: Male
  Weight: 130 kg

DRUGS (8)
  1. METHOTREXATE (METHOTREXATE SODIUM) [Interacting]
     Active Substance: METHOTREXATE SODIUM
     Indication: Diffuse large B-cell lymphoma
     Dosage: 6 G , DURATION : 1 DAY
     Route: 042
     Dates: start: 20220314, end: 20220314
  2. METFORMIN [Suspect]
     Active Substance: METFORMIN HYDROCHLORIDE
     Indication: Type 2 diabetes mellitus
     Dosage: CHLORHYDRATE DE METFORMINE , UNIT DOSE : 2550 MG , FREQUENCY TIME :1 DAY
     Route: 048
     Dates: end: 20220317
  3. ESOMEPRAZOLE [Interacting]
     Active Substance: ESOMEPRAZOLE
     Indication: Prophylaxis
     Dosage: FREQUENCY TIME :1 DAY , UNIT DOSE : 40 MG
     Route: 048
     Dates: end: 20220318
  4. VALSARTAN [Suspect]
     Active Substance: VALSARTAN
     Indication: Hypertension
     Dosage: FREQUENCY TIME :1 DAY , UNIT DOSE : 160 MG
     Route: 048
     Dates: end: 20220317
  5. VALACYCLOVIR HYDROCHLORIDE [Suspect]
     Active Substance: VALACYCLOVIR HYDROCHLORIDE
     Indication: Prophylaxis
     Dosage: CHLORHYDRATE DE VALACICLOVIR , FREQUENCY TIME :1 DAY , UNIT DOSE : 1000 MG
     Route: 048
     Dates: end: 20220317
  6. KARDEGIC [Interacting]
     Active Substance: ASPIRIN DL-LYSINE
     Indication: Prophylaxis
     Dosage: UNIT DOSE : 160 MG , POWDER FOR ORAL SOLUTION IN SACHET , STRENGTH : 160 MG , FREQUENCY TIME : 1 DAY
     Route: 048
  7. PENICILLIN G BENZATHINE [Interacting]
     Active Substance: PENICILLIN G BENZATHINE
     Indication: Dermo-hypodermitis
     Dosage: EXTENCILLINE 2.4 M U.I, FREQUENCY TIME : 1 MONTH , DURATION : 1 DAY
     Route: 030
     Dates: start: 20220303, end: 20220303
  8. HYDROCHLOROTHIAZIDE [Suspect]
     Active Substance: HYDROCHLOROTHIAZIDE
     Indication: Hypertension
     Dosage: 25 MG , FREQUENCY TIME : 1 DAY
     Route: 048
     Dates: end: 20220317

REACTIONS (2)
  - Acute kidney injury [Recovering/Resolving]
  - Drug interaction [Unknown]

NARRATIVE: CASE EVENT DATE: 20220316
